FAERS Safety Report 7268909-1 (Version None)
Quarter: 2011Q1

REPORT INFORMATION
  Report Type: 
  Country: None (occurrence: None)
  Receive Date: 20110201
  Receipt Date: 20110120
  Transmission Date: 20110831
  Serious: Yes (Hospitalization)
  Sender: FDA-Public Use
  Company Number: SE-GENENTECH-312833

PATIENT
  Age: 33 Year
  Sex: Female

DRUGS (5)
  1. MABTHERA [Suspect]
     Dosage: 1000 MG, UNK
     Route: 042
     Dates: start: 20101102
  2. PREDNISOLONE [Concomitant]
     Indication: PRODUCT USED FOR UNKNOWN INDICATION
     Dosage: UNK
     Route: 065
  3. PLAQUENIL [Concomitant]
     Indication: PRODUCT USED FOR UNKNOWN INDICATION
     Dosage: UNK
     Route: 065
  4. MABTHERA [Suspect]
     Indication: SYSTEMIC SCLEROSIS
     Dosage: UNK
     Route: 042
     Dates: start: 20100217
  5. CELLCEPT [Concomitant]
     Indication: PRODUCT USED FOR UNKNOWN INDICATION
     Dosage: UNK
     Route: 065

REACTIONS (1)
  - ARTHRITIS [None]
